FAERS Safety Report 8330289-8 (Version None)
Quarter: 2012Q2

REPORT INFORMATION
  Report Type: 
  Country: None (occurrence: None)
  Receive Date: 20120502
  Receipt Date: 20120424
  Transmission Date: 20120825
  Serious: Yes (Other)
  Sender: FDA-Public Use
  Company Number: PHHY2012JP033740

PATIENT
  Age: 63 Year
  Sex: Male

DRUGS (3)
  1. NEORAL [Suspect]
     Dosage: 120 MG, UNK
     Route: 048
     Dates: start: 20080801
  2. AFINITOR [Interacting]
     Dosage: 5 MG, UNK
     Route: 048
     Dates: start: 20120414, end: 20120416
  3. AFINITOR [Interacting]
     Indication: RENAL CELL CARCINOMA
     Dosage: 10 MG, UNK
     Route: 048
     Dates: start: 20120327, end: 20120413

REACTIONS (5)
  - DRUG LEVEL INCREASED [None]
  - INTERSTITIAL LUNG DISEASE [None]
  - PYREXIA [None]
  - COUGH [None]
  - DRUG INTERACTION [None]
